FAERS Safety Report 7958173-X (Version None)
Quarter: 2011Q4

REPORT INFORMATION
  Report Type: 
  Country: None (occurrence: None)
  Receive Date: 20111205
  Receipt Date: 20111123
  Transmission Date: 20120403
  Serious: Yes (Hospitalization, Other)
  Sender: FDA-Public Use
  Company Number: US-ELI_LILLY_AND_COMPANY-US201112000729

PATIENT
  Sex: Female

DRUGS (6)
  1. VITAMIN D [Concomitant]
     Dosage: 50000 UNK, UNK
  2. OMEPRAZOLE [Concomitant]
     Dosage: 20 MG, QD
  3. IBUPROFEN [Concomitant]
     Dosage: 800 MG, QD
  4. METOPROLOL [Concomitant]
     Dosage: 50 MG, QD
  5. FORTEO [Suspect]
     Indication: OSTEOPOROSIS
     Dosage: 20 UG, QD
     Dates: end: 20111117
  6. CITALOPRAM [Concomitant]
     Dosage: 20 MG, QD

REACTIONS (2)
  - STRESS [None]
  - ANAEMIA [None]
